FAERS Safety Report 9401601 (Version 1)
Quarter: 2013Q3

REPORT INFORMATION
  Report Type: Spontaneous
  Country: FR (occurrence: FR)
  Receive Date: 20130716
  Receipt Date: 20130716
  Transmission Date: 20140515
  Serious: Yes (Hospitalization)
  Sender: FDA-Public Use
  Company Number: FR-ABBOTT-13X-056-1119249-00

PATIENT
  Age: 44 Year
  Sex: Male

DRUGS (6)
  1. DEPAKINE [Suspect]
     Indication: EPILEPSY
     Route: 048
  2. CLOZAPINE [Concomitant]
     Indication: PRODUCT USED FOR UNKNOWN INDICATION
     Dates: start: 20130621
  3. LOXAPAC [Concomitant]
     Indication: PRODUCT USED FOR UNKNOWN INDICATION
  4. LEPTICUR [Concomitant]
     Indication: PRODUCT USED FOR UNKNOWN INDICATION
  5. TERALITHE [Concomitant]
     Indication: PRODUCT USED FOR UNKNOWN INDICATION
  6. VALIUM [Concomitant]
     Indication: PRODUCT USED FOR UNKNOWN INDICATION

REACTIONS (3)
  - Activated partial thromboplastin time prolonged [Not Recovered/Not Resolved]
  - Coagulation factor XI level decreased [Not Recovered/Not Resolved]
  - Coagulation factor XII level decreased [Not Recovered/Not Resolved]
